FAERS Safety Report 4536905-0 (Version None)
Quarter: 2004Q4

REPORT INFORMATION
  Report Type: 
  Country: None (occurrence: None)
  Receive Date: 20041220
  Receipt Date: 20041207
  Transmission Date: 20050328
  Serious: Yes (Hospitalization)
  Sender: FDA-Public Use
  Company Number: 140856USA

PATIENT
  Age: 65 Year
  Sex: Female
  Weight: 77.1115 kg

DRUGS (4)
  1. ADRUCIL [Suspect]
     Indication: BREAST CANCER
     Dates: start: 20041116
  2. EPIRUBICIN [Suspect]
     Indication: BREAST CANCER
     Dates: start: 20041116
  3. CYTOXAN [Suspect]
     Indication: BREAST CANCER
     Dates: start: 20040316
  4. ATENOLOL [Concomitant]

REACTIONS (1)
  - PYREXIA [None]
